FAERS Safety Report 4702237-0 (Version None)
Quarter: 2005Q2

REPORT INFORMATION
  Report Type: 
  Country: None (occurrence: None)
  Receive Date: 20050628
  Receipt Date: 20050628
  Transmission Date: 20051028
  Serious: No
  Sender: FDA-Public Use
  Company Number: None

PATIENT
  Sex: Male
  Weight: 73.2 kg

DRUGS (3)
  1. CYTARABINE [Suspect]
     Dosage: 1500 MG/M2 AS A ONE HOUR IV INFUSION Q 12 HRS  FOR A TOTAL OF 12 DOSES (DAYS 1-6) FOR PATIENTS { 70
     Route: 042
     Dates: start: 20050422
  2. CORTICOSTEROID [Suspect]
     Dosage: 2 DROPS OU QID FOR 10 DAYS.
  3. NEUPOGEN [Suspect]
     Dosage: 5 UG/KG/DAY

REACTIONS (1)
  - FEBRILE NEUTROPENIA [None]
